FAERS Safety Report 7992517-8 (Version None)
Quarter: 2011Q4

REPORT INFORMATION
  Report Type: 
  Country: None (occurrence: None)
  Receive Date: 20111219
  Receipt Date: 20111219
  Transmission Date: 20120403
  Serious: Yes (Life-Threatening)
  Sender: FDA-Public Use
  Company Number: CN-BRACCO-000226

PATIENT
  Age: 57 Year
  Sex: Male

DRUGS (2)
  1. MULTIHANCE [Suspect]
     Indication: LIVER SCAN
     Route: 042
     Dates: start: 20110804, end: 20110804
  2. MULTIHANCE [Suspect]
     Indication: HEPATIC NEOPLASM MALIGNANT
     Route: 042
     Dates: start: 20110804, end: 20110804

REACTIONS (5)
  - BLOOD PRESSURE IMMEASURABLE [None]
  - URINARY INCONTINENCE [None]
  - NAUSEA [None]
  - FOAMING AT MOUTH [None]
  - VOMITING [None]
